FAERS Safety Report 25686506 (Version 3)
Quarter: 2025Q3

REPORT INFORMATION
  Report Type: Spontaneous
  Country: US (occurrence: US)
  Receive Date: 20250815
  Receipt Date: 20250917
  Transmission Date: 20251021
  Serious: Yes (Hospitalization)
  Sender: BRISTOL-MYERS SQUIBB COMPANY
  Company Number: US-BRISTOL-MYERS SQUIBB COMPANY-2025-113085

PATIENT
  Age: 76 Year
  Sex: Female

DRUGS (3)
  1. POMALYST [Suspect]
     Active Substance: POMALIDOMIDE
     Indication: Plasma cell myeloma
     Dates: start: 2021
  2. POMALYST [Suspect]
     Active Substance: POMALIDOMIDE
     Dates: start: 20250810
  3. POMALYST [Suspect]
     Active Substance: POMALIDOMIDE

REACTIONS (6)
  - Cystitis escherichia [Unknown]
  - Laboratory test abnormal [Unknown]
  - Hyponatraemia [Unknown]
  - Urinary tract infection [Unknown]
  - Treatment delayed [Unknown]
  - Treatment noncompliance [Unknown]
